FAERS Safety Report 7508120-X (Version None)
Quarter: 2011Q2

REPORT INFORMATION
  Report Type: 
  Country: None (occurrence: None)
  Receive Date: 20110527
  Receipt Date: 20100623
  Transmission Date: 20111010
  Serious: Yes (Hospitalization, Other)
  Sender: FDA-Public Use
  Company Number: US-BAYER-200912351NA

PATIENT
  Age: 28 Year
  Sex: Female
  Weight: 68.027 kg

DRUGS (13)
  1. YASMIN [Suspect]
     Indication: PREMENSTRUAL SYNDROME
  2. FLUOXETINE [Concomitant]
  3. DROSPIRENONE AND ETHINYL ESTRADIOL [Suspect]
     Indication: CONTRACEPTION
     Dosage: 1 DF (DAILY DOSE), QD, ORAL
     Route: 048
     Dates: start: 20080801, end: 20081101
  4. DROSPIRENONE AND ETHINYL ESTRADIOL [Suspect]
     Indication: PREMENSTRUAL SYNDROME
     Dosage: 1 DF (DAILY DOSE), QD, ORAL
     Route: 048
     Dates: start: 20090124, end: 20090127
  5. VITAMIN B12 NOS [Concomitant]
     Route: 048
  6. YASMIN [Suspect]
     Indication: CONTRACEPTION
     Dosage: UNK
     Dates: start: 20020101, end: 20090101
  7. YASMIN [Suspect]
  8. YAZ [Suspect]
  9. MULTI-VITAMINS [Concomitant]
     Route: 048
  10. PROZAC [Concomitant]
  11. YAZ [Suspect]
     Indication: CONTRACEPTION
     Dosage: UNK
     Dates: start: 20040101, end: 20040101
  12. DROSPIRENONE AND ETHINYL ESTRADIOL [Suspect]
  13. YAZ [Suspect]
     Indication: PREMENSTRUAL SYNDROME

REACTIONS (8)
  - GALLBLADDER DISORDER [None]
  - DEPRESSION [None]
  - IRRITABILITY [None]
  - PREMENSTRUAL SYNDROME [None]
  - CRYING [None]
  - CHOLECYSTITIS [None]
  - BILIARY COLIC [None]
  - ANXIETY [None]
